FAERS Safety Report 5917022-1 (Version None)
Quarter: 2008Q4

REPORT INFORMATION
  Report Type: 
  Country: None (occurrence: None)
  Receive Date: 20081010
  Receipt Date: 20081010
  Transmission Date: 20090506
  Serious: Yes (Congenital Anomaly)
  Sender: FDA-Public Use
  Company Number: None

PATIENT

DRUGS (1)
  1. MOXIFLOXACIN HCL [Suspect]
     Indication: PNEUMONIA
     Dosage: 1 X ONLY
     Dates: start: 20080922

REACTIONS (5)
  - ABNORMAL BEHAVIOUR [None]
  - BALANCE DISORDER [None]
  - DYSSTASIA [None]
  - HAEMORRHAGE [None]
  - SKIN LACERATION [None]
